FAERS Safety Report 6301937-9 (Version None)
Quarter: 2009Q3

REPORT INFORMATION
  Report Type: 
  Country: None (occurrence: None)
  Receive Date: 20090807
  Receipt Date: 20090804
  Transmission Date: 20100115
  Serious: Yes (Death, Hospitalization)
  Sender: FDA-Public Use
  Company Number: US-SANOFI-SYNTHELABO-A03200903448

PATIENT
  Sex: Male

DRUGS (1)
  1. PLAVIX [Suspect]
     Indication: CARDIAC DISORDER
     Dosage: UNK
     Route: 048

REACTIONS (9)
  - AMNESIA [None]
  - COMA [None]
  - DEATH [None]
  - DRUG INEFFECTIVE [None]
  - INCOHERENT [None]
  - LEUKAEMIA [None]
  - MALAISE [None]
  - MYOCARDIAL INFARCTION [None]
  - TRAUMATIC INTRACRANIAL HAEMORRHAGE [None]
